FAERS Safety Report 24056549 (Version 1)
Quarter: 2024Q3

REPORT INFORMATION
  Report Type: Spontaneous
  Country: FR (occurrence: FR)
  Receive Date: 20240705
  Receipt Date: 20240705
  Transmission Date: 20241017
  Serious: Yes (Life-Threatening, Other)
  Sender: SAMSUNG BIOEPIS
  Company Number: None

PATIENT
  Age: 59 Year
  Sex: Female
  Weight: 73.5 kg

DRUGS (1)
  1. INFLIXIMAB [Suspect]
     Active Substance: INFLIXIMAB
     Indication: Sarcoidosis
     Dosage: 4 UNITS IN THE INTERVAL
     Route: 042
     Dates: start: 202401, end: 20240304

REACTIONS (2)
  - Anaphylactic shock [Recovered/Resolved]
  - Off label use [Unknown]

NARRATIVE: CASE EVENT DATE: 20240304
